FAERS Safety Report 13977680 (Version 13)
Quarter: 2022Q3

REPORT INFORMATION
  Report Type: Report from Study
  Country: GB (occurrence: GB)
  Receive Date: 20170915
  Receipt Date: 20220723
  Transmission Date: 20221027
  Serious: Yes (Hospitalization, Other)
  Sender: FDA-Public Use
  Company Number: None

PATIENT
  Age: 83 Year
  Sex: Female
  Weight: 49.2 kg

DRUGS (25)
  1. RAMIPRIL [Suspect]
     Active Substance: RAMIPRIL
     Indication: Cardiac failure
     Dosage: ON 04-JUL-2017, RECEIVED THE MOST RECENT DOSE OF RAMIPRIL?1.25 MG, QD
     Route: 048
     Dates: start: 20170418, end: 20170704
  2. SPIRONOLACTONE [Suspect]
     Active Substance: SPIRONOLACTONE
     Indication: Cardiac failure
     Dosage: 25 MG, QD 5400 MG CD
     Route: 048
     Dates: start: 20161201, end: 20170704
  3. DIOVAN [Suspect]
     Active Substance: VALSARTAN
     Indication: Product used for unknown indication
     Dosage: CODE NOT BROKEN
     Route: 048
     Dates: start: 20151116, end: 20160122
  4. SACUBITRIL\VALSARTAN [Suspect]
     Active Substance: SACUBITRIL\VALSARTAN
     Indication: Cardiac failure
     Dosage: CODE NOT BROKEN
     Route: 048
     Dates: start: 20151116, end: 20160122
  5. SACUBITRIL [Suspect]
     Active Substance: SACUBITRIL
     Indication: Cardiac failure
     Dosage: 25 MG, QD
     Route: 048
     Dates: start: 20170806, end: 20170928
  6. VALSARTAN [Suspect]
     Active Substance: VALSARTAN
     Indication: Cardiac failure
     Dosage: CODE NOT BROKEN
     Route: 048
     Dates: start: 20151116
  7. ACETAMINOPHEN [Concomitant]
     Active Substance: ACETAMINOPHEN
     Indication: Pain
     Dosage: 1000 MG, PRN
     Route: 048
  8. NICORANDIL [Concomitant]
     Active Substance: NICORANDIL
     Indication: Myocardial ischaemia
     Dosage: 20 MG, QD
     Route: 048
     Dates: start: 201403
  9. FUROSEMIDE [Concomitant]
     Active Substance: FUROSEMIDE
     Dosage: 80 MG, QD
     Route: 048
     Dates: start: 20160808, end: 20160830
  10. BUMETANIDE [Concomitant]
     Active Substance: BUMETANIDE
     Dosage: 3 MG, BID
     Route: 048
     Dates: start: 20170315, end: 20170413
  11. CLOPIDOGREL [Concomitant]
     Active Substance: CLOPIDOGREL BISULFATE
     Indication: Myocardial ischaemia
     Dosage: 75 MG, QD
     Route: 048
     Dates: start: 2011
  12. ALENDRONIC ACID [Concomitant]
     Active Substance: ALENDRONIC ACID
     Dosage: 70 MG, QW
     Route: 048
     Dates: start: 2011
  13. ATORVASTATIN [Concomitant]
     Active Substance: ATORVASTATIN
     Indication: Myocardial ischaemia
     Dosage: 40 MG, QD
     Route: 048
     Dates: start: 20110301
  14. CANDESARTAN [Concomitant]
     Active Substance: CANDESARTAN
     Indication: Cardiac failure
     Dosage: 8 MG, QD
     Route: 048
     Dates: start: 20160805, end: 20160830
  15. CALCIUM CARBONATE\CHOLECALCIFEROL [Concomitant]
     Active Substance: CALCIUM CARBONATE\CHOLECALCIFEROL
     Indication: Osteoporosis
     Dosage: NA ML OD
     Route: 048
  16. SENNA [Concomitant]
     Active Substance: SENNA LEAF\SENNOSIDES\SENNOSIDES A AND B
     Indication: Constipation
     Dosage: 30 MG, QD
     Route: 048
     Dates: start: 2012
  17. LANSOPRAZOLE [Concomitant]
     Active Substance: LANSOPRAZOLE
     Dosage: 30 MG, QD
     Route: 048
     Dates: start: 2011
  18. NITROGLYCERIN [Concomitant]
     Active Substance: NITROGLYCERIN
     Indication: Myocardial ischaemia
     Dosage: 400 UG, PRN
     Route: 060
  19. SPIRONOLACTONE [Suspect]
     Active Substance: SPIRONOLACTONE
     Dosage: 25 MILLIGRAM, ONCE A DAY
     Route: 048
     Dates: start: 20170806, end: 20170928
  20. DIOVAN [Suspect]
     Active Substance: VALSARTAN
     Indication: Cardiac failure
     Dosage: CODE NOT BROKEN
     Route: 048
     Dates: start: 20151116
  21. SACUBITRIL [Suspect]
     Active Substance: SACUBITRIL
     Indication: Product used for unknown indication
     Dosage: CODE NOT BROKEN
     Route: 048
     Dates: start: 20151116, end: 20160122
  22. FUROSEMIDE [Concomitant]
     Active Substance: FUROSEMIDE
     Dosage: 80 MG, QD
     Route: 048
     Dates: start: 20160808, end: 20160830
  23. ACETAMINOPHEN [Concomitant]
     Active Substance: ACETAMINOPHEN
     Indication: Pain
     Dosage: 1000 MG, PRN
     Route: 048
  24. BUMETANIDE [Concomitant]
     Active Substance: BUMETANIDE
     Dosage: 3 MG, BID
     Dates: start: 20170315, end: 20170413
  25. SACUBITRIL [Suspect]
     Active Substance: SACUBITRIL
     Indication: Cardiac failure
     Dosage: CODE NOT BROKEN
     Route: 048
     Dates: start: 20151106, end: 20160122

REACTIONS (6)
  - Fall [Unknown]
  - Renal impairment [Recovering/Resolving]
  - Cardiac failure [Recovered/Resolved]
  - Anaemia [Recovering/Resolving]
  - Delirium [Not Recovered/Not Resolved]
  - Brain stem stroke [Recovered/Resolved]

NARRATIVE: CASE EVENT DATE: 20160831
